FAERS Safety Report 24050146 (Version 5)
Quarter: 2025Q1

REPORT INFORMATION
  Report Type: Report from Study
  Country: US (occurrence: US)
  Receive Date: 20240704
  Receipt Date: 20250108
  Transmission Date: 20250408
  Serious: Yes (Other)
  Sender: TAKEDA
  Company Number: US-TAKEDA-2024TUS067378

PATIENT
  Age: 9 Year
  Sex: Male

DRUGS (3)
  1. VONICOG ALFA [Suspect]
     Active Substance: VONICOG ALFA
     Indication: Prophylaxis
  2. VONICOG ALFA [Suspect]
     Active Substance: VONICOG ALFA
     Dosage: 3440 INTERNATIONAL UNIT, 1/WEEK
  3. VONICOG ALFA [Suspect]
     Active Substance: VONICOG ALFA
     Dosage: 3440 INTERNATIONAL UNIT, 1/WEEK

REACTIONS (6)
  - Epistaxis [Unknown]
  - Contusion [Unknown]
  - Fall [Unknown]
  - Ear infection [Unknown]
  - Limb injury [Unknown]
  - Product dose omission issue [Unknown]

NARRATIVE: CASE EVENT DATE: 20240626
